FAERS Safety Report 8370479-1 (Version None)
Quarter: 2012Q2

REPORT INFORMATION
  Report Type: 
  Country: None (occurrence: None)
  Receive Date: 20120518
  Receipt Date: 20120515
  Transmission Date: 20120825
  Serious: Yes (Other)
  Sender: FDA-Public Use
  Company Number: PHEH2012US007304

PATIENT
  Sex: Female
  Weight: 78.005 kg

DRUGS (7)
  1. MIRALAX [Concomitant]
     Dosage: UNK UKN, UNK
  2. LYRICA [Concomitant]
     Dosage: 150 MG, BID
     Route: 048
  3. LISINOPRIL [Concomitant]
     Dosage: UNK UKN, UNK
  4. PRAVASTATIN [Concomitant]
     Dosage: UNK UKN, UNK
  5. GILENYA [Suspect]
     Indication: MULTIPLE SCLEROSIS
     Dosage: 0.5 MG, QD
     Route: 048
     Dates: start: 20120126
  6. ZOLOFT [Concomitant]
     Dosage: UNK UKN, UNK
  7. BACLOFEN [Concomitant]
     Dosage: UNK UKN, UNK

REACTIONS (8)
  - LOSS OF CONSCIOUSNESS [None]
  - DIZZINESS POSTURAL [None]
  - HEART RATE DECREASED [None]
  - ORTHOSTATIC HYPOTENSION [None]
  - GASTROOESOPHAGEAL REFLUX DISEASE [None]
  - CYSTITIS [None]
  - DYSPNOEA [None]
  - FATIGUE [None]
